FAERS Safety Report 7136215-1 (Version None)
Quarter: 2010Q4

REPORT INFORMATION
  Report Type: 
  Country: None (occurrence: None)
  Receive Date: 20101206
  Receipt Date: 20101124
  Transmission Date: 20110411
  Serious: Yes (Hospitalization, Other)
  Sender: FDA-Public Use
  Company Number: US-BIOGENIDEC-2009BI002936

PATIENT
  Age: 65 Year
  Sex: Female

DRUGS (2)
  1. AVONEX [Suspect]
     Indication: MULTIPLE SCLEROSIS
     Route: 030
     Dates: end: 20100310
  2. AVONEX [Suspect]
     Route: 030
     Dates: start: 20100501

REACTIONS (7)
  - ABDOMINAL STRANGULATED HERNIA [None]
  - BREAST CANCER [None]
  - HERNIA [None]
  - PARALYSIS [None]
  - STAPHYLOCOCCAL INFECTION [None]
  - THROMBOSIS [None]
  - VULVAL CANCER STAGE I [None]
